FAERS Safety Report 24533178 (Version 3)
Quarter: 2025Q1

REPORT INFORMATION
  Report Type: Report from Study
  Country: CH (occurrence: CH)
  Receive Date: 20241022
  Receipt Date: 20250307
  Transmission Date: 20250409
  Serious: Yes (Hospitalization, Other)
  Sender: UCB
  Company Number: CH-UCBSA-2024053522

PATIENT
  Sex: Female
  Weight: 62 kg

DRUGS (2)
  1. BIMEKIZUMAB [Suspect]
     Active Substance: BIMEKIZUMAB
     Indication: Psoriasis
     Route: 058
     Dates: start: 20230509, end: 202404
  2. BIMEKIZUMAB [Suspect]
     Active Substance: BIMEKIZUMAB
     Indication: Psoriatic arthropathy

REACTIONS (9)
  - Hepatitis acute [Not Recovered/Not Resolved]
  - Acute on chronic liver failure [Unknown]
  - Liver transplant [Recovered/Resolved]
  - Acute hepatic failure [Recovered/Resolved]
  - Hepatic cirrhosis [Recovered/Resolved]
  - Hepatitis cholestatic [Recovered/Resolved]
  - Hepatotoxicity [Recovered/Resolved]
  - Jaundice [Not Recovered/Not Resolved]
  - Intentional dose omission [Unknown]

NARRATIVE: CASE EVENT DATE: 20240401
